FAERS Safety Report 4276640-X (Version None)
Quarter: 2004Q1

REPORT INFORMATION
  Report Type: 
  Country: None (occurrence: None)
  Receive Date: 20040120
  Receipt Date: 20040113
  Transmission Date: 20041129
  Serious: Yes (Disabling, Other)
  Sender: FDA-Public Use
  Company Number: 2004193977US

PATIENT
  Age: 16 Year
  Sex: Male
  Weight: 85.5 kg

DRUGS (2)
  1. GENOTROPIN [Suspect]
     Indication: HYPOPITUITARISM
     Dosage: 25.2 MG, WEEKLY/6 INJ/WEEK
     Dates: start: 20030111, end: 20031219
  2. SYNTHROID [Concomitant]

REACTIONS (6)
  - ARTHRALGIA [None]
  - HYPOTHYROIDISM [None]
  - OSTEOCHONDROSIS [None]
  - OSTEONECROSIS [None]
  - PAIN IN EXTREMITY [None]
  - SLIPPED FEMORAL EPIPHYSIS [None]
